FAERS Safety Report 4677221-6 (Version None)
Quarter: 2005Q2

REPORT INFORMATION
  Report Type: 
  Country: None (occurrence: None)
  Receive Date: 20050526
  Receipt Date: 20050518
  Transmission Date: 20051028
  Serious: Yes (Hospitalization)
  Sender: FDA-Public Use
  Company Number: 2005077668

PATIENT
  Age: 83 Year
  Sex: Female

DRUGS (4)
  1. ALDACTONE [Suspect]
     Indication: ILL-DEFINED DISORDER
     Dosage: 75 MG (75 MG, INTERVAL: EVERY DAY), ORAL
     Route: 048
     Dates: end: 20050209
  2. FOSINOPRIL SODIUM [Suspect]
     Indication: ILL-DEFINED DISORDER
     Dosage: 1 DOSE FORM (INTERVAL: EVERY DAY), ORAL
     Route: 048
     Dates: end: 20050209
  3. KERLONE [Concomitant]
  4. PLAVIX [Concomitant]

REACTIONS (5)
  - BLOOD CREATININE INCREASED [None]
  - BLOOD POTASSIUM INCREASED [None]
  - HYPERKALAEMIA [None]
  - RENAL FAILURE ACUTE [None]
  - SINOATRIAL BLOCK [None]
